FAERS Safety Report 4621358-4 (Version None)
Quarter: 2005Q1

REPORT INFORMATION
  Report Type: 
  Country: None (occurrence: None)
  Receive Date: 20050323
  Receipt Date: 20050323
  Transmission Date: 20050727
  Serious: Yes (Life-Threatening, Hospitalization)
  Sender: FDA-Public Use
  Company Number: None

PATIENT
  Age: 51 Year
  Sex: Female
  Weight: 69 kg

DRUGS (10)
  1. ABCIXIMAB [Suspect]
     Indication: CORONARY ANGIOPLASTY
     Dosage: 10  MCG/MIN   INTRAVENOU
     Route: 042
     Dates: start: 20050313, end: 20050313
  2. ABCIXIMAB [Suspect]
     Indication: CORONARY ARTERIAL STENT INSERTION
     Dosage: 10  MCG/MIN   INTRAVENOU
     Route: 042
     Dates: start: 20050313, end: 20050313
  3. ASPIRIN [Concomitant]
  4. CLOPIDOGREL [Concomitant]
  5. HEPARIN [Concomitant]
  6. NITROGLYCERIN [Concomitant]
  7. LIPITOR [Concomitant]
  8. METOPROLOL TARTRATE [Concomitant]
  9. LANTUS [Concomitant]
  10. ADVAIR DISKUS 100/50 [Concomitant]

REACTIONS (13)
  - CHEST PAIN [None]
  - DRUG EFFECT DECREASED [None]
  - ELECTROCARDIOGRAM ST SEGMENT ELEVATION [None]
  - HAEMATOCRIT DECREASED [None]
  - HAEMATOMA [None]
  - HAEMOGLOBIN DECREASED [None]
  - POST PROCEDURAL COMPLICATION [None]
  - REOCCLUSION [None]
  - RETROPERITONEAL HAEMORRHAGE [None]
  - STENT OCCLUSION [None]
  - SURGICAL PROCEDURE REPEATED [None]
  - THROMBOCYTOPENIA [None]
  - TRANSFUSION REACTION [None]
